FAERS Safety Report 5503404-9 (Version None)
Quarter: 2007Q4

REPORT INFORMATION
  Report Type: 
  Country: None (occurrence: None)
  Receive Date: 20071031
  Receipt Date: 20070716
  Transmission Date: 20080405
  Serious: Yes (Other)
  Sender: FDA-Public Use
  Company Number: AT-GENENTECH-250575

PATIENT
  Age: 70 Year
  Sex: Female
  Weight: 93 kg

DRUGS (1)
  1. AVASTIN [Suspect]
     Indication: DRUG USE FOR UNKNOWN INDICATION
     Route: 031
     Dates: start: 20070531

REACTIONS (3)
  - ENDOPHTHALMITIS [None]
  - EYE INFLAMMATION [None]
  - VITRITIS [None]
